FAERS Safety Report 8933263 (Version 3)
Quarter: 2012Q4

REPORT INFORMATION
  Report Type: 
  Country: HU (occurrence: HU)
  Receive Date: 20121129
  Receipt Date: 20121219
  Transmission Date: 20130627
  Serious: Yes (Other)
  Sender: FDA-Public Use
  Company Number: PHHY2012HU109096

PATIENT
  Age: 80 Year
  Sex: Male
  Weight: 60 kg

DRUGS (5)
  1. ONBREZ [Suspect]
     Indication: CHRONIC OBSTRUCTIVE PULMONARY DISEASE
     Dosage: 150 ug, QD
     Dates: start: 20110926, end: 20111006
  2. NEVIBOLOL DCI [Concomitant]
     Dosage: 5 mg, QD
     Dates: start: 20090511
  3. FAMOTIDIN [Concomitant]
     Dosage: 40 mg, UNK
     Dates: start: 20090511
  4. SERETIDE DISCUS [Concomitant]
     Dosage: 500 ug, BID
     Dates: start: 200905
  5. SPIRIVA [Concomitant]

REACTIONS (3)
  - Cardiopulmonary failure [Recovered/Resolved]
  - Tachyarrhythmia [Recovered/Resolved]
  - Bronchitis [Recovered/Resolved]
